FAERS Safety Report 17442206 (Version 7)
Quarter: 2020Q3

REPORT INFORMATION
  Report Type: Spontaneous
  Country: PL (occurrence: PL)
  Receive Date: 20200220
  Receipt Date: 20200914
  Transmission Date: 20201102
  Serious: Yes (Hospitalization)
  Sender: FDA-Public Use
  Company Number: PL-AMERICAN REGENT INC-20181173

PATIENT
  Age: 37 Year
  Sex: Female

DRUGS (40)
  1. FERINJECT [Suspect]
     Active Substance: FERRIC CARBOXYMALTOSE
     Dosage: UNK
     Route: 042
  2. VENOFER [Suspect]
     Active Substance: IRON SUCROSE
     Dosage: UNK
     Route: 042
  3. IRON [Suspect]
     Active Substance: IRON
     Dosage: 100 MG, 1 IN 1 WK
     Route: 048
     Dates: start: 201408
  4. VENOFER [Suspect]
     Active Substance: IRON SUCROSE
     Indication: PRODUCT USED FOR UNKNOWN INDICATION
     Dosage: 100 MG, 1 IN 1 WEEK
     Route: 042
     Dates: start: 201408
  5. SPIRAMYCIN [Suspect]
     Active Substance: SPIRAMYCIN
     Indication: TOXOPLASMOSIS
     Dosage: AFTER EACH DIALYSIS
     Route: 065
     Dates: start: 20150501
  6. CEFUROXIME. [Suspect]
     Active Substance: CEFUROXIME
     Indication: CYSTITIS
     Dosage: UNKNOWN
     Route: 065
     Dates: start: 20150501
  7. IRON [Suspect]
     Active Substance: IRON
     Dosage: UNK
     Route: 042
     Dates: start: 201408
  8. RISEDRONIC ACID [Concomitant]
     Active Substance: RISEDRONIC ACID
     Indication: PRODUCT USED FOR UNKNOWN INDICATION
     Dosage: UNK
     Route: 065
  9. VENOFER [Suspect]
     Active Substance: IRON SUCROSE
     Dosage: UNK
     Route: 042
     Dates: end: 201503
  10. VENOFER [Suspect]
     Active Substance: IRON SUCROSE
     Dosage: UNK
  11. MALTOFER                           /00023548/ [Suspect]
     Active Substance: IRON POLYMALTOSE
     Dosage: 100 MILLIGRAM
     Route: 048
     Dates: start: 201503
  12. SPIRAMYCIN [Suspect]
     Active Substance: SPIRAMYCIN
     Indication: CYSTITIS
  13. LEVOTHYROXINE SODIUM. [Suspect]
     Active Substance: LEVOTHYROXINE SODIUM
     Indication: HYPOTHYROIDISM
     Dosage: 25 MCG (25 MCG, 1 IN 1 D)
     Route: 065
     Dates: start: 20150501
  14. HEPARIN [Suspect]
     Active Substance: HEPARIN SODIUM
     Indication: ANTICOAGULANT THERAPY
     Dosage: UNKNOWN
     Route: 065
  15. ALFACALCIDOL [Concomitant]
     Active Substance: ALFACALCIDOL
     Indication: HYPERPARATHYROIDISM SECONDARY
     Dosage: 0.25 MCG (0.25  MCG, 1 IN 1 D)
     Route: 065
  16. FERINJECT [Suspect]
     Active Substance: FERRIC CARBOXYMALTOSE
     Dosage: 100 MG
     Route: 042
     Dates: start: 201408
  17. FERINJECT [Suspect]
     Active Substance: FERRIC CARBOXYMALTOSE
     Dosage: UNK
     Route: 042
     Dates: end: 201503
  18. VENOFER [Suspect]
     Active Substance: IRON SUCROSE
     Dosage: 100 MG, 1 IN 1 WEEK
     Route: 042
  19. SIMVASTATIN. [Suspect]
     Active Substance: SIMVASTATIN
     Indication: HYPERCHOLESTEROLAEMIA
     Dosage: 20 MILLIGRAM
     Route: 065
  20. SIMVASTATIN. [Suspect]
     Active Substance: SIMVASTATIN
     Dosage: UNK
  21. EPOETIN BETA [Suspect]
     Active Substance: ERYTHROPOIETIN
     Dosage: UNK, 1/WEEK, AFTER EACH DIALYSIS
     Route: 058
  22. IRON [Suspect]
     Active Substance: IRON
     Indication: PRODUCT USED FOR UNKNOWN INDICATION
     Dosage: 100 MG, 1 IN 1 WK
     Route: 042
  23. FOLIC ACID. [Suspect]
     Active Substance: FOLIC ACID
     Indication: PRODUCT USED FOR UNKNOWN INDICATION
     Dosage: 15 MG (15 MG, 1 IN 1 D)
     Route: 048
     Dates: start: 20150301
  24. ASCORBIC ACID. [Concomitant]
     Active Substance: ASCORBIC ACID
     Indication: PRODUCT USED FOR UNKNOWN INDICATION
     Dosage: AFTER EACH DIALYSIS
     Route: 065
     Dates: start: 201503
  25. ACETYLSALICYLIC ACID [Suspect]
     Active Substance: ASPIRIN
     Indication: HYPERTENSION
  26. EPOETIN BETA [Suspect]
     Active Substance: ERYTHROPOIETIN
     Indication: PRODUCT USED FOR UNKNOWN INDICATION
     Dosage: 2000 IU, 1/WEEK, AFTER EACH DIALYSIS
     Route: 058
  27. IRON [Suspect]
     Active Substance: IRON
     Dosage: 100 MILLIGRAM
     Route: 048
     Dates: start: 201503
  28. ASCORBIC ACID W/FERROUS SULFATE [Suspect]
     Active Substance: ASCORBIC ACID\FERROUS SULFATE
     Indication: PRODUCT USED FOR UNKNOWN INDICATION
     Dosage: 1 IN 1 D
     Route: 048
     Dates: end: 2015
  29. TORASEMIDE [Suspect]
     Active Substance: TORSEMIDE
     Indication: HYPERTENSION
     Dosage: 2.5 MG (2.5 MG, 1 IN 1 D)
     Route: 065
  30. METHYLDOPA. [Suspect]
     Active Substance: METHYLDOPA
     Dosage: UNK
     Route: 065
     Dates: start: 201505
  31. ACETYLSALICYLIC ACID [Suspect]
     Active Substance: ASPIRIN
     Indication: PROPHYLAXIS
     Dosage: 75 MG (75 MG, 1 IN 1 D)
     Route: 048
     Dates: start: 20150301
  32. EPOETIN BETA [Suspect]
     Active Substance: ERYTHROPOIETIN
     Dosage: 2000 IU, 1/WEEK, AFTER EACH DIALYSIS
     Route: 058
  33. VITAMIN D3 [Concomitant]
     Active Substance: CHOLECALCIFEROL
     Indication: PRODUCT USED FOR UNKNOWN INDICATION
     Dosage: UNKNOWN
     Route: 065
  34. MALTOFER                           /00023548/ [Suspect]
     Active Substance: IRON POLYMALTOSE
     Indication: PRODUCT USED FOR UNKNOWN INDICATION
     Dosage: 100 MG, 1 IN 1 WK
     Route: 048
     Dates: start: 201408
  35. ERYTHROPOIETIN [Suspect]
     Active Substance: ERYTHROPOIETIN
     Indication: PRODUCT USED FOR UNKNOWN INDICATION
     Dosage: 4000 IU, 1 IN 1 WK
     Route: 058
  36. ERYTHROPOIETIN [Suspect]
     Active Substance: ERYTHROPOIETIN
     Dosage: AFTER EACH DIALYSIS (2000 IU)
     Route: 058
  37. FERINJECT [Suspect]
     Active Substance: FERRIC CARBOXYMALTOSE
     Indication: PRODUCT USED FOR UNKNOWN INDICATION
     Dosage: 50 MG
     Route: 042
  38. METHYLDOPA. [Suspect]
     Active Substance: METHYLDOPA
     Indication: HYPERTENSION
     Dosage: 3 DOSAGE FORMS (1 DOSAGE FORMS, 3 IN 1 D)
     Route: 065
     Dates: start: 20150301
  39. EPOETIN BETA [Suspect]
     Active Substance: ERYTHROPOIETIN
     Dosage: 4000 IU, 1/WEEK, AFTER EACH DIALYSIS
     Route: 058
     Dates: end: 201508
  40. ASCORBIC ACID W/CALCIUM GLUBIONATE [Suspect]
     Active Substance: ASCORBIC ACID\CALCIUM GLUBIONATE
     Indication: PRODUCT USED FOR UNKNOWN INDICATION
     Dosage: UNKNOWN
     Route: 065
     Dates: end: 2015

REACTIONS (13)
  - Cystitis [Unknown]
  - Blood albumin decreased [Unknown]
  - Off label use [Unknown]
  - Hypothyroidism [Unknown]
  - Live birth [Unknown]
  - Premature delivery [Unknown]
  - Haemoglobin decreased [Unknown]
  - Maternal exposure during pregnancy [Unknown]
  - Premature rupture of membranes [Unknown]
  - Oedema peripheral [Unknown]
  - Haematocrit decreased [Unknown]
  - Toxoplasmosis [Unknown]
  - Contraindicated product administered [Unknown]

NARRATIVE: CASE EVENT DATE: 201408
